APPROVED DRUG PRODUCT: ORA-TESTRYL
Active Ingredient: FLUOXYMESTERONE
Strength: 2MG
Dosage Form/Route: TABLET;ORAL
Application: N011359 | Product #001
Applicant: BRISTOL MYERS SQUIBB
Approved: Approved Prior to Jan 1, 1982 | RLD: No | RS: No | Type: DISCN